FAERS Safety Report 6652098-8 (Version None)
Quarter: 2010Q1

REPORT INFORMATION
  Report Type: 
  Country: None (occurrence: None)
  Receive Date: 20100323
  Receipt Date: 20100310
  Transmission Date: 20100710
  Serious: Yes (Life-Threatening, Hospitalization)
  Sender: FDA-Public Use
  Company Number: TRP_06844_2010

PATIENT
  Sex: Female
  Weight: 50 kg

DRUGS (6)
  1. AMPHOCIL (AMPHOCIL - AMPHOTERICIN B) (NOT SPECIFIED) [Suspect]
     Indication: FUNGAL INFECTION
     Dosage: (200 MG QD INTRAVENOUS (NOT OTHERWISE SPECIFIED))
     Route: 042
     Dates: start: 20100206
  2. ZYVOXID (ZYVOXID - LINEZOLID) (NOT SPECIFIED) [Suspect]
     Indication: STAPHYLOCOCCAL INFECTION
     Dosage: (600 MG BID INTRAVENOUS (NOT OTHERWISE SPECIFIED)
     Route: 042
     Dates: start: 20100127, end: 20100206
  3. TAZOCIN [Concomitant]
  4. TARGOCID [Concomitant]
  5. CELLCEPT [Concomitant]
  6. PROGRAF [Concomitant]

REACTIONS (5)
  - CHILLS [None]
  - NAUSEA [None]
  - PANCYTOPENIA [None]
  - PYREXIA [None]
  - VOMITING [None]
